FAERS Safety Report 14432696 (Version 1)
Quarter: 2018Q1

REPORT INFORMATION
  Report Type: Report from Study
  Country: ES (occurrence: ES)
  Receive Date: 20180124
  Receipt Date: 20180124
  Transmission Date: 20180509
  Serious: Yes (Life-Threatening, Hospitalization)
  Sender: FDA-Public Use
  Company Number: ES-PFIZER INC-2018032120

PATIENT
  Age: 45 Year
  Sex: Male

DRUGS (9)
  1. DIAZEPAM. [Suspect]
     Active Substance: DIAZEPAM
     Dosage: 50 TABLETS OF 10 MG
     Route: 048
     Dates: start: 20161123, end: 20161123
  2. PARACETAMOL [Suspect]
     Active Substance: ACETAMINOPHEN
     Dosage: 80 TABLETS
     Dates: start: 20161123, end: 20161123
  3. ORFIDAL [Suspect]
     Active Substance: LORAZEPAM
     Dosage: 50 TABLETS
     Route: 048
     Dates: start: 20161123, end: 20161123
  4. TRANKIMAZIN [Suspect]
     Active Substance: ALPRAZOLAM
     Dosage: 10 TABLETS OF 1 MG
     Route: 048
     Dates: start: 20161123, end: 20161123
  5. DAPAROX /00830803/ [Suspect]
     Active Substance: PAROXETINE MESYLATE
     Dosage: 56 TABLETS OF 20 MG
     Route: 048
     Dates: start: 20161123, end: 20161123
  6. VENLAFAXINE HCL [Suspect]
     Active Substance: VENLAFAXINE HYDROCHLORIDE
     Dosage: 24 TABLETS OF 75 MG
     Route: 048
     Dates: start: 20161123, end: 20161123
  7. IBUPROFEN. [Suspect]
     Active Substance: IBUPROFEN
     Dosage: 60 TABLETS
     Route: 048
     Dates: start: 20161123, end: 20161123
  8. LEXATIN /00424801/ [Suspect]
     Active Substance: BROMAZEPAM
     Dosage: 30 TABLETS OF 1.5 MG
     Route: 048
     Dates: start: 20161123, end: 20161123
  9. DEPRAX /00447702/ [Suspect]
     Active Substance: TRAZODONE HYDROCHLORIDE
     Dosage: 32 TABLETS
     Route: 048
     Dates: start: 20161123, end: 20161123

REACTIONS (2)
  - Altered state of consciousness [Recovered/Resolved]
  - Suicide attempt [Recovered/Resolved]

NARRATIVE: CASE EVENT DATE: 20161123
